FAERS Safety Report 4678590-3 (Version None)
Quarter: 2005Q2

REPORT INFORMATION
  Report Type: 
  Country: None (occurrence: None)
  Receive Date: 20050527
  Receipt Date: 20050523
  Transmission Date: 20051028
  Serious: Yes (Life-Threatening)
  Sender: FDA-Public Use
  Company Number: 200511658GDS

PATIENT
  Age: 39 Year
  Sex: Female

DRUGS (4)
  1. MOXIFLOXACIN HCL [Suspect]
     Indication: BRONCHITIS
     Dosage: 400 MG, QD, ORAL
     Route: 048
     Dates: start: 20050520
  2. EBASTEL (EBASTINE) [Suspect]
     Indication: HYPERSENSITIVITY
     Dosage: ORAL
     Route: 048
     Dates: start: 20050520
  3. IRON [Concomitant]
  4. AMOXICILLIN [Concomitant]

REACTIONS (5)
  - ARRHYTHMIA [None]
  - DIARRHOEA [None]
  - DRUG HYPERSENSITIVITY [None]
  - PALPITATIONS [None]
  - URTICARIA [None]
